FAERS Safety Report 7992188-0 (Version None)
Quarter: 2011Q4

REPORT INFORMATION
  Report Type: 
  Country: None (occurrence: None)
  Receive Date: 20111219
  Receipt Date: 20110707
  Transmission Date: 20120403
  Serious: No
  Sender: FDA-Public Use
  Company Number: US-ASTRAZENECA-2011SE40760

PATIENT
  Sex: Female

DRUGS (15)
  1. PHENERGAN [Concomitant]
     Indication: NAUSEA
     Dosage: 25 MG 1 EVERY 4-6 HOURS AS NEEDED FOR NAUSEA
     Route: 048
     Dates: start: 20110419
  2. GABAPENTIN [Concomitant]
     Route: 048
     Dates: start: 20110419
  3. CYMBALTA [Concomitant]
     Route: 048
     Dates: start: 20110419
  4. RANITIDINE HCL [Concomitant]
     Route: 048
     Dates: start: 20110419
  5. NOVOLOG [Concomitant]
     Dosage: 100/ML, INJECT PER INSULIN SLIDING SCALE PROTOCOL
     Route: 058
     Dates: start: 20110419
  6. BUSPIRONE HCL [Concomitant]
     Route: 048
     Dates: start: 20110419
  7. METFORMIN HCL [Concomitant]
     Route: 048
     Dates: start: 20110419
  8. PONSTEL [Concomitant]
     Route: 048
     Dates: start: 20110419
  9. LANTUS [Concomitant]
     Dosage: 100/ML, INJECT 70 EVERY 12 HOURS AND TITRATE AS DIRECTED
     Route: 058
     Dates: start: 20110419
  10. BUSPIRONE HCL [Concomitant]
     Route: 048
     Dates: start: 20110419
  11. PONSTEL [Concomitant]
     Route: 048
     Dates: start: 20110419
  12. REQUIP [Concomitant]
     Route: 048
     Dates: start: 20110419
  13. PERCOCET [Concomitant]
     Dosage: 7.5-325 MG EVERY 6 HOURS AS NEEDED
     Route: 048
     Dates: start: 20110419
  14. CRESTOR [Suspect]
     Route: 048
     Dates: start: 20110419
  15. FLUOXETINE HYDROCHLORIDE [Concomitant]
     Route: 048
     Dates: start: 20110419

REACTIONS (5)
  - DEPRESSION [None]
  - DIABETIC NEUROPATHY [None]
  - TYPE 2 DIABETES MELLITUS [None]
  - HYPERTENSION [None]
  - VIRAL UPPER RESPIRATORY TRACT INFECTION [None]
